FAERS Safety Report 17931214 (Version 2)
Quarter: 2020Q3

REPORT INFORMATION
  Report Type: Report from Study
  Country: None (occurrence: AU)
  Receive Date: 20200623
  Receipt Date: 20200701
  Transmission Date: 20201103
  Serious: Yes (Hospitalization)
  Sender: FDA-Public Use
  Company Number: AU-ABBVIE-20P-008-3437489-00

PATIENT
  Age: 2 Year
  Sex: Male
  Weight: 11.4 kg

DRUGS (19)
  1. ACICLOVIR [Concomitant]
     Active Substance: ACYCLOVIR
     Indication: ANTIVIRAL PROPHYLAXIS
     Route: 050
     Dates: start: 20200408
  2. METOCLOPRAMIDE. [Concomitant]
     Active Substance: METOCLOPRAMIDE
     Indication: PROPHYLAXIS OF NAUSEA AND VOMITING
     Route: 042
     Dates: start: 20200509
  3. IODINE?POTASSIUM IODIDE [Concomitant]
     Indication: PROPHYLAXIS
     Route: 048
     Dates: start: 20200508
  4. ALLOPURINOL. [Concomitant]
     Active Substance: ALLOPURINOL
     Indication: PROPHYLAXIS
     Route: 042
     Dates: start: 20200507, end: 20200513
  5. TOPOTECAN [Suspect]
     Active Substance: TOPOTECAN HYDROCHLORIDE
     Indication: REFRACTORY CANCER
  6. ONDANSETRON [Concomitant]
     Active Substance: ONDANSETRON
     Indication: PROPHYLAXIS OF NAUSEA AND VOMITING
     Route: 042
     Dates: start: 20200430
  7. VENETOCLAX. [Suspect]
     Active Substance: VENETOCLAX
     Indication: RECURRENT CANCER
     Route: 050
     Dates: start: 20200508
  8. HEPARIN SALINE LOCK 50UI/5ML [Concomitant]
     Indication: PROPHYLAXIS
     Route: 042
     Dates: start: 20200507
  9. SULFAMETHOXAZOLE? TRIMETHOPRIM (BACTRIM) [Concomitant]
     Indication: ANTIFUNGAL PROPHYLAXIS
     Route: 050
     Dates: start: 20200320
  10. OXYCODONE [Concomitant]
     Active Substance: OXYCODONE
     Indication: PAIN
     Route: 050
     Dates: start: 20200507
  11. VENETOCLAX. [Suspect]
     Active Substance: VENETOCLAX
     Indication: REFRACTORY CANCER
     Route: 050
     Dates: start: 20200507, end: 20200507
  12. NILSTAT [Concomitant]
     Active Substance: NYSTATIN
     Indication: ANTIFUNGAL PROPHYLAXIS
     Route: 048
     Dates: start: 20200507
  13. MESNA. [Concomitant]
     Active Substance: MESNA
     Indication: INFECTION PROPHYLAXIS
     Dosage: FOR 5 DAYS WITH EACH CYCLE OF CYCLOPHOSPHAMIDE
     Route: 042
     Dates: start: 20200509
  14. CHLORAMPHENICOL OPHTHALMIC (CHLORSIG 1%) [Concomitant]
     Indication: CONJUNCTIVITIS
     Dosage: 1 APPLICATION TO RIGHT EYE
     Route: 061
     Dates: start: 20200509
  15. SODIUM BICARBONATE MOUTHWASH [Concomitant]
     Indication: DENTAL DISORDER PROPHYLAXIS
     Route: 048
     Dates: start: 20200507
  16. TOPOTECAN [Suspect]
     Active Substance: TOPOTECAN HYDROCHLORIDE
     Indication: RECURRENT CANCER
     Dosage: MAXIMUM OF 5 DAYS EVERY 21 DAYS
     Route: 042
     Dates: start: 20200509
  17. CYCLOPHOSPHAMIDE. [Suspect]
     Active Substance: CYCLOPHOSPHAMIDE
     Indication: REFRACTORY CANCER
     Dosage: MAXIMUM OF 5 DAYS EVERY 21 DAYS
     Route: 042
     Dates: start: 20200509
  18. CYCLOPHOSPHAMIDE. [Suspect]
     Active Substance: CYCLOPHOSPHAMIDE
     Indication: RECURRENT CANCER
  19. PARACETAMOL [Concomitant]
     Active Substance: ACETAMINOPHEN
     Indication: TUMOUR PAIN
     Route: 050
     Dates: start: 20200324

REACTIONS (2)
  - Clostridial infection [Recovered/Resolved]
  - Facial pain [Not Recovered/Not Resolved]

NARRATIVE: CASE EVENT DATE: 20200608
